FAERS Safety Report 5579463-4 (Version None)
Quarter: 2007Q4

REPORT INFORMATION
  Report Type: 
  Country: None (occurrence: None)
  Receive Date: 20071130
  Receipt Date: 20070712
  Transmission Date: 20080405
  Serious: No
  Sender: FDA-Public Use
  Company Number: US200707003246

PATIENT
  Age: 75 Year
  Sex: Female
  Weight: 84.4 kg

DRUGS (12)
  1. BYETTA [Suspect]
     Indication: TYPE 2 DIABETES MELLITUS
     Dosage: 5 UG, 2/D, SUBCUTANEOUS ; 10 UG, 2/D, SUBCUTANEOUS
     Route: 058
     Dates: start: 20070101, end: 20070401
  2. BYETTA [Suspect]
     Indication: TYPE 2 DIABETES MELLITUS
     Dosage: 5 UG, 2/D, SUBCUTANEOUS ; 10 UG, 2/D, SUBCUTANEOUS
     Route: 058
     Dates: start: 20070401
  3. LANTUS (INSUIN GLARGINE) [Concomitant]
  4. VYTORIN [Concomitant]
  5. ASPIRIN [Concomitant]
  6. TENORMIN [Concomitant]
  7. LEVOTHYROXINE SODIUM [Concomitant]
  8. PROCRIT [Concomitant]
  9. HYDROCHLOROTHIAZIDE [Concomitant]
  10. COZAAR [Concomitant]
  11. VITAMIN D [Concomitant]
  12. IRON (IRON) [Concomitant]

REACTIONS (8)
  - BASAL CELL CARCINOMA [None]
  - BLOOD GLUCOSE DECREASED [None]
  - DIZZINESS [None]
  - HYPERHIDROSIS [None]
  - INJECTION SITE RASH [None]
  - INJECTION SITE URTICARIA [None]
  - NAUSEA [None]
  - WEIGHT DECREASED [None]
